FAERS Safety Report 16118740 (Version 1)
Quarter: 2019Q1

REPORT INFORMATION
  Report Type: Spontaneous
  Country: FR (occurrence: FR)
  Receive Date: 20190326
  Receipt Date: 20190326
  Transmission Date: 20190418
  Serious: Yes (Other)
  Sender: FDA-Public Use
  Company Number: FR-SA-2019SA076793

PATIENT
  Age: 71 Year
  Sex: Female

DRUGS (1)
  1. KETEK [Suspect]
     Active Substance: TELITHROMYCIN
     Indication: INFECTION
     Route: 048

REACTIONS (1)
  - Angioedema [Recovered/Resolved]
